FAERS Safety Report 12555561 (Version 1)
Quarter: 2016Q3

REPORT INFORMATION
  Report Type: Spontaneous
  Country: US (occurrence: None)
  Receive Date: 20160713
  Receipt Date: 20160713
  Transmission Date: 20161109
  Serious: Yes (Life-Threatening, Hospitalization, Other)
  Sender: FDA-Public Use
  Company Number: None

PATIENT
  Age: 69 Year
  Sex: Female
  Weight: 112.04 kg

DRUGS (3)
  1. MULTIVITAMIN [Concomitant]
     Active Substance: VITAMINS
  2. LEVAQUIN [Suspect]
     Active Substance: LEVOFLOXACIN
     Indication: DIVERTICULITIS
     Dosage: 10 TABLET(S) TWICE A DAY TAKEN BY MOUTH
     Route: 048
     Dates: start: 20160701, end: 20160701
  3. FLAGYL [Concomitant]
     Active Substance: METRONIDAZOLE\METRONIDAZOLE HYDROCHLORIDE

REACTIONS (11)
  - Anaphylactic shock [None]
  - Feeling hot [None]
  - Chest discomfort [None]
  - Tremor [None]
  - Syncope [None]
  - Urticaria [None]
  - Dyspnoea [None]
  - Cough [None]
  - Hypotension [None]
  - Hyperhidrosis [None]
  - Oral discomfort [None]

NARRATIVE: CASE EVENT DATE: 20160701
